FAERS Safety Report 4303282-X (Version None)
Quarter: 2004Q1

REPORT INFORMATION
  Report Type: 
  Country: None (occurrence: None)
  Receive Date: 20040223
  Receipt Date: 20040216
  Transmission Date: 20041129
  Serious: Yes (Hospitalization)
  Sender: FDA-Public Use
  Company Number: GB-JNJFOC-20040203216

PATIENT
  Age: 37 Year
  Sex: Male
  Weight: 88.5 kg

DRUGS (1)
  1. REMICADE [Suspect]
     Indication: RHEUMATOID ARTHRITIS
     Dosage: 265.5 MG, INTRAVENOUS
     Route: 042
     Dates: start: 20040122, end: 20040122

REACTIONS (2)
  - CYANOSIS [None]
  - TREMOR [None]
